FAERS Safety Report 6150573 (Version 2)
Quarter: 2015Q1

REPORT INFORMATION
  Report Type: Spontaneous
  Country: IT (occurrence: IT)
  Receive Date: 20061020
  Receipt Date: 20150318
  Transmission Date: 20150721
  Serious: Yes (Death, Other)
  Sender: FDA-Public Use
  Company Number: IT-BRISTOL-MYERS SQUIBB COMPANY-13541545

PATIENT
  Age: 76 Year
  Sex: Female

DRUGS (1)
  1. HYDROXYUREA. [Suspect]
     Active Substance: HYDROXYUREA
     Indication: MYELOPROLIFERATIVE DISORDER
     Dosage: 730 G, UNK
     Route: 065

REACTIONS (2)
  - Myocardial infarction [Fatal]
  - Skin ulcer [Recovered/Resolved]
